FAERS Safety Report 11841468 (Version 1)
Quarter: 2015Q4

REPORT INFORMATION
  Report Type: Spontaneous
  Country: SE (occurrence: SE)
  Receive Date: 20151216
  Receipt Date: 20151216
  Transmission Date: 20160305
  Serious: Yes (Other)
  Sender: FDA-Public Use
  Company Number: SE-BRISTOL-MYERS SQUIBB COMPANY-BMS-2015-086257

PATIENT

DRUGS (10)
  1. CETUXIMAB [Suspect]
     Active Substance: CETUXIMAB
     Dosage: 250 MG/M2, QWK
     Route: 042
  2. CETUXIMAB [Suspect]
     Active Substance: CETUXIMAB
     Indication: ANAL SQUAMOUS CELL CARCINOMA
     Dosage: 400 MG/M2, QWK
     Route: 042
  3. 5-FLUOROURACIL                     /00098801/ [Suspect]
     Active Substance: FLUOROURACIL
     Dosage: 1000 MG/M2, UNK
     Route: 042
  4. MITOMYCIN. [Suspect]
     Active Substance: MITOMYCIN
     Indication: ANAL SQUAMOUS CELL CARCINOMA
     Dosage: 6 MG/M2, UNK
     Route: 042
  5. MITOMYCIN. [Suspect]
     Active Substance: MITOMYCIN
     Dosage: 8 MG/M2, UNK
     Route: 042
  6. MITOMYCIN. [Suspect]
     Active Substance: MITOMYCIN
     Dosage: 10 MG/M2, UNK
     Route: 042
  7. LYMECYCLINE [Concomitant]
     Active Substance: LYMECYCLINE
     Indication: PROPHYLAXIS
     Dosage: 300 MG, BID
     Route: 065
  8. 5-FLUOROURACIL                     /00098801/ [Suspect]
     Active Substance: FLUOROURACIL
     Indication: ANAL SQUAMOUS CELL CARCINOMA
     Dosage: 800 MG/M2, UNK
     Route: 042
  9. BETAMETHASONE. [Concomitant]
     Active Substance: BETAMETHASONE
     Indication: PREMEDICATION
     Dosage: 8 MG, UNK
     Route: 042
  10. CLEMASTINE [Concomitant]
     Active Substance: CLEMASTINE
     Indication: PREMEDICATION
     Dosage: 2 MG, UNK
     Route: 042

REACTIONS (5)
  - Thrombocytopenia [Unknown]
  - Embolism [Unknown]
  - Radiation skin injury [Unknown]
  - Neutropenia [Unknown]
  - Diarrhoea [Unknown]
